FAERS Safety Report 12403244 (Version 3)
Quarter: 2016Q3

REPORT INFORMATION
  Report Type: Spontaneous
  Country: US (occurrence: US)
  Receive Date: 20160404
  Receipt Date: 20160901
  Transmission Date: 20161109
  Serious: Yes (Other)
  Sender: FDA-Public Use
  Company Number: US-RELYPSA-RLY2016000217

PATIENT
  Age: 80 Year
  Sex: Female

DRUGS (19)
  1. VELTASSA [Suspect]
     Active Substance: PATIROMER
     Indication: HYPERKALAEMIA
     Dosage: 8.4 G, QD
     Dates: start: 20160304, end: 20160313
  2. NEBIVOLOL                          /01339102/ [Concomitant]
     Active Substance: NEBIVOLOL
  3. DEXILANT [Concomitant]
     Active Substance: DEXLANSOPRAZOLE
  4. ACETAMINOPHEN. [Concomitant]
     Active Substance: ACETAMINOPHEN
  5. LANTUS [Concomitant]
     Active Substance: INSULIN GLARGINE
  6. AMLODIPINE                         /00972402/ [Concomitant]
     Active Substance: AMLODIPINE BESYLATE
  7. ONGLYZA [Concomitant]
     Active Substance: SAXAGLIPTIN HYDROCHLORIDE
  8. ISOSORBIDE                         /07346401/ [Concomitant]
     Dosage: 8.4 G, UNK
     Dates: start: 20160304, end: 20160313
  9. CLOPIDOGREL                        /01220704/ [Concomitant]
  10. ASPIRIN                            /00002701/ [Concomitant]
     Active Substance: ASPIRIN
  11. FUSION PLUS [Concomitant]
     Active Substance: IRON\VITAMIN B
  12. VALSARTAN. [Concomitant]
     Active Substance: VALSARTAN
  13. GLIMEPIRIDE. [Concomitant]
     Active Substance: GLIMEPIRIDE
  14. CLONAZEPAM. [Concomitant]
     Active Substance: CLONAZEPAM
  15. CATAPRES [Concomitant]
     Active Substance: CLONIDINE HYDROCHLORIDE
  16. TRAMADOL                           /00599202/ [Concomitant]
     Active Substance: TRAMADOL
  17. FUROSEMIDE                         /00032602/ [Concomitant]
     Active Substance: FUROSEMIDE
  18. HYDRALAZINE [Concomitant]
     Active Substance: HYDRALAZINE HYDROCHLORIDE
  19. ZETIA [Concomitant]
     Active Substance: EZETIMIBE

REACTIONS (4)
  - Depression [Recovered/Resolved]
  - Arthralgia [Recovered/Resolved]
  - Suicidal ideation [Recovered/Resolved]
  - Myalgia [Recovered/Resolved]

NARRATIVE: CASE EVENT DATE: 20160308
